FAERS Safety Report 14148676 (Version 1)
Quarter: 2017Q4

REPORT INFORMATION
  Report Type: Spontaneous
  Country: US (occurrence: US)
  Receive Date: 20171031
  Receipt Date: 20171031
  Transmission Date: 20180321
  Serious: No
  Sender: FDA-Public Use
  Company Number: None

PATIENT
  Age: 35 Year
  Sex: Female
  Weight: 76.5 kg

DRUGS (5)
  1. BOTOX [Suspect]
     Active Substance: ONABOTULINUMTOXINA
     Indication: MIGRAINE
     Dates: start: 20171027
  2. TIZANIDINE. [Concomitant]
     Active Substance: TIZANIDINE
  3. CLARITIN [Concomitant]
     Active Substance: LORATADINE
  4. ACYCLOVIR. [Concomitant]
     Active Substance: ACYCLOVIR
  5. FLONASE [Concomitant]
     Active Substance: FLUTICASONE PROPIONATE

REACTIONS (9)
  - Influenza [None]
  - Thinking abnormal [None]
  - Abdominal distension [None]
  - Gastrointestinal disorder [None]
  - Vomiting [None]
  - Upper respiratory tract infection [None]
  - Nausea [None]
  - Anxiety [None]
  - Diarrhoea [None]

NARRATIVE: CASE EVENT DATE: 20171029
